FAERS Safety Report 11456465 (Version 1)
Quarter: 2015Q3

REPORT INFORMATION
  Report Type: Spontaneous
  Country: PR (occurrence: PR)
  Receive Date: 20150903
  Receipt Date: 20150903
  Transmission Date: 20151125
  Serious: No
  Sender: FDA-Public Use
  Company Number: PR-BAXTER-2015BAX047242

PATIENT
  Sex: Female
  Weight: 2.46 kg

DRUGS (8)
  1. SODIUM PHOSPHATE [Suspect]
     Active Substance: SODIUM PHOSPHATE
     Indication: NUTRITIONAL SUPPLEMENTATION
     Route: 042
     Dates: start: 20150821, end: 20150822
  2. 70% DEXTROSE INJECTION USP [Suspect]
     Active Substance: DEXTROSE
     Indication: NUTRITIONAL SUPPLEMENTATION
     Route: 042
     Dates: start: 20150821, end: 20150822
  3. POTASSIUM CHLORIDE 0.4MEQ/ML [Suspect]
     Active Substance: POTASSIUM CHLORIDE
     Indication: NUTRITIONAL SUPPLEMENTATION
     Route: 042
     Dates: start: 20150821, end: 20150822
  4. STERILE WATER [Suspect]
     Active Substance: WATER
     Indication: NUTRITIONAL SUPPLEMENTATION
     Route: 042
     Dates: start: 20150821, end: 20150822
  5. 5% SODIUM CHLORIDE INJECTION [Suspect]
     Active Substance: SODIUM CHLORIDE
     Indication: NUTRITIONAL SUPPLEMENTATION
     Route: 042
     Dates: start: 20150821, end: 20150822
  6. PEDIATRIC INFUVITE MULTIPLE VITAMINS [Suspect]
     Active Substance: ALPHA-TOCOPHEROL ACETATE\ASCORBIC ACID\BIOTIN\CHOLECALCIFEROL\CYANOCOBALAMIN\DEXPANTHENOL\FOLIC ACID\NIACINAMIDE\PHYTONADIONE\PYRIDOXINE HYDROCHLORIDE\RIBOFLAVIN 5^-PHOSPHATE SODIUM\THIAMINE HYDROCHLORIDE\VITAMIN A PALMITATE
     Indication: NUTRITIONAL SUPPLEMENTATION
     Route: 042
     Dates: start: 20150821, end: 20150822
  7. MULTITRACE -4 PEDIATRIC [Suspect]
     Active Substance: CHROMIC CHLORIDE\CUPRIC SULFATE\MANGANESE SULFATE\ZINC SULFATE HEPTAHYDRATE
     Indication: NUTRITIONAL SUPPLEMENTATION
     Route: 042
     Dates: start: 20150821, end: 20150822
  8. PREMASOL 6% [Suspect]
     Active Substance: AMINO ACIDS
     Indication: NUTRITIONAL SUPPLEMENTATION
     Route: 042
     Dates: start: 20150821, end: 20150822

REACTIONS (3)
  - No adverse event [Recovered/Resolved]
  - Product preparation error [Recovered/Resolved]
  - Product compounding quality issue [Recovered/Resolved]

NARRATIVE: CASE EVENT DATE: 20150821
